FAERS Safety Report 9333607 (Version 1)
Quarter: 2013Q2

REPORT INFORMATION
  Report Type: Spontaneous
  Country: US (occurrence: US)
  Receive Date: 20130606
  Receipt Date: 20130606
  Transmission Date: 20140414
  Serious: No
  Sender: FDA-Public Use
  Company Number: US-AMGEN-USASP2012079589

PATIENT
  Age: 49 Year
  Sex: Female

DRUGS (6)
  1. PROLIA [Suspect]
     Indication: OSTEOPENIA
  2. ADVAIR [Concomitant]
  3. OMEGA 3 6 9 [Concomitant]
  4. CALCIUM [Concomitant]
  5. MAGNESIUM [Concomitant]
  6. ZINC [Concomitant]

REACTIONS (3)
  - Muscle spasms [Unknown]
  - Hypoaesthesia [Unknown]
  - Back pain [Unknown]
